FAERS Safety Report 16690130 (Version 1)
Quarter: 2019Q3

REPORT INFORMATION
  Report Type: Report from Study
  Country: FR (occurrence: FR)
  Receive Date: 20190809
  Receipt Date: 20190809
  Transmission Date: 20191004
  Serious: Yes (Other)
  Sender: FDA-Public Use
  Company Number: FR-PROVELL PHARMACEUTICALS-2072988

PATIENT

DRUGS (4)
  1. EUTHYROX [Suspect]
     Active Substance: LEVOTHYROXINE SODIUM
  2. EUTHYROX [Suspect]
     Active Substance: LEVOTHYROXINE SODIUM
     Indication: PRODUCT USED FOR UNKNOWN INDICATION
  3. EUTHYROX [Suspect]
     Active Substance: LEVOTHYROXINE SODIUM
  4. EUTHYROX [Suspect]
     Active Substance: LEVOTHYROXINE SODIUM

REACTIONS (10)
  - Hyperthyroidism [None]
  - Tachycardia [Recovered/Resolved]
  - Blood thyroid stimulating hormone decreased [None]
  - Fatigue [None]
  - Underweight [None]
  - Irritability [None]
  - Heart rate decreased [None]
  - Asthenia [None]
  - Nervousness [None]
  - Tri-iodothyronine decreased [None]
